FAERS Safety Report 5428701-7 (Version None)
Quarter: 2007Q3

REPORT INFORMATION
  Report Type: 
  Country: None (occurrence: None)
  Receive Date: 20070828
  Receipt Date: 20070815
  Transmission Date: 20080115
  Serious: Yes (Hospitalization)
  Sender: FDA-Public Use
  Company Number: DK-SHR-DK-2007-031071

PATIENT
  Age: 16 Year
  Sex: Female

DRUGS (3)
  1. YASMIN [Suspect]
     Indication: ORAL CONTRACEPTION
     Dosage: 1 TAB(S), 21D/28D
     Route: 048
     Dates: start: 20060701, end: 20061201
  2. DIURETICS [Concomitant]
  3. ALL OTHER THERAPEUTIC PRODUCTS [Concomitant]

REACTIONS (11)
  - CARDIAC FIBRILLATION [None]
  - CHEST PAIN [None]
  - CHILLS [None]
  - DIZZINESS [None]
  - DYSPNOEA [None]
  - HEART RATE INCREASED [None]
  - HYPERVENTILATION [None]
  - MALAISE [None]
  - NAUSEA [None]
  - PALPITATIONS [None]
  - VISION BLURRED [None]
